FAERS Safety Report 24164119 (Version 9)
Quarter: 2024Q3

REPORT INFORMATION
  Report Type: Report from Study
  Country: CA (occurrence: CA)
  Receive Date: 20240801
  Receipt Date: 20240924
  Transmission Date: 20241016
  Serious: Yes (Other)
  Sender: CSL BEHRING
  Company Number: CA-BEH-2024175463

PATIENT
  Age: 75 Year
  Sex: Female
  Weight: 56.689 kg

DRUGS (10)
  1. HIZENTRA [Suspect]
     Active Substance: HUMAN IMMUNOGLOBULIN G
     Indication: Primary immunodeficiency syndrome
     Dosage: 8 G, QW
     Route: 065
     Dates: start: 20240626
  2. HIZENTRA [Suspect]
     Active Substance: HUMAN IMMUNOGLOBULIN G
     Dosage: 10 G, QW
     Route: 065
     Dates: start: 20240726
  3. HIZENTRA [Suspect]
     Active Substance: HUMAN IMMUNOGLOBULIN G
     Dosage: 4 G
     Route: 065
     Dates: start: 20240626
  4. HIZENTRA [Suspect]
     Active Substance: HUMAN IMMUNOGLOBULIN G
     Dosage: 20 ML
     Route: 065
  5. HIZENTRA [Suspect]
     Active Substance: HUMAN IMMUNOGLOBULIN G
     Dosage: 10 ML
     Route: 065
  6. HIZENTRA [Suspect]
     Active Substance: HUMAN IMMUNOGLOBULIN G
     Dosage: 10 G, QW
     Route: 058
  7. HIZENTRA [Suspect]
     Active Substance: HUMAN IMMUNOGLOBULIN G
     Dosage: 8 G, QW
     Route: 065
     Dates: start: 20240626
  8. HIZENTRA [Suspect]
     Active Substance: HUMAN IMMUNOGLOBULIN G
     Dosage: 8 G, QW
     Route: 065
  9. HIZENTRA [Suspect]
     Active Substance: HUMAN IMMUNOGLOBULIN G
     Dosage: 8 G, QW
     Route: 065
  10. HYDROMORPHONE [Concomitant]
     Active Substance: HYDROMORPHONE

REACTIONS (32)
  - Loss of consciousness [Unknown]
  - Blood immunoglobulin G decreased [Unknown]
  - Infusion site hypersensitivity [Unknown]
  - Fat tissue decreased [Unknown]
  - Fatigue [Unknown]
  - Asthenia [Unknown]
  - Sleep attacks [Unknown]
  - Fall [Unknown]
  - Pain [Unknown]
  - Insomnia [Unknown]
  - Disturbance in attention [Unknown]
  - Intentional dose omission [Unknown]
  - General physical health deterioration [Unknown]
  - Intentional dose omission [Unknown]
  - Fall [Unknown]
  - Limb injury [Unknown]
  - Pain [Unknown]
  - Device leakage [Unknown]
  - Insomnia [Unknown]
  - Bradykinesia [Unknown]
  - Fatigue [Unknown]
  - Refusal of treatment by patient [Unknown]
  - Therapy change [Unknown]
  - Asthenia [Unknown]
  - Fatigue [Unknown]
  - Limb discomfort [Unknown]
  - Infusion site erythema [Unknown]
  - Intentional dose omission [Unknown]
  - Fatigue [Unknown]
  - Impaired work ability [Unknown]
  - Condition aggravated [Unknown]
  - Product contamination [Unknown]

NARRATIVE: CASE EVENT DATE: 20240626
